FAERS Safety Report 9412780 (Version 2)
Quarter: 2013Q3

REPORT INFORMATION
  Report Type: Report from Study
  Country: BR (occurrence: BR)
  Receive Date: 20130722
  Receipt Date: 20130819
  Transmission Date: 20140515
  Serious: Yes (Hospitalization, Other)
  Sender: FDA-Public Use
  Company Number: PHHY2013BR077710

PATIENT
  Sex: Female
  Weight: 68 kg

DRUGS (4)
  1. DIOVAN AMLO FIX [Suspect]
     Indication: HYPERTENSION
     Dosage: 1 DF, (320/5 MG) DAILY
     Route: 048
  2. NATRILIX [Suspect]
     Indication: HYPERTENSION
     Dosage: 1.5 MG, ONCE A DAY
  3. DIGEDRAT [Concomitant]
     Indication: DIVERTICULITIS
     Dosage: 1 DF, (200 MG) DAILY
     Route: 048
  4. ALPRAZOLAM [Concomitant]
     Indication: SEDATIVE THERAPY
     Dosage: 1 DF, (0.5 MG) DAILY
     Route: 048

REACTIONS (6)
  - Gastrointestinal infection [Recovered/Resolved]
  - Dengue fever [Recovered/Resolved]
  - Diabetes mellitus [Recovering/Resolving]
  - Neck pain [Recovered/Resolved]
  - Headache [Recovered/Resolved]
  - Local swelling [Not Recovered/Not Resolved]
